FAERS Safety Report 7617510-6 (Version None)
Quarter: 2011Q3

REPORT INFORMATION
  Report Type: 
  Country: None (occurrence: None)
  Receive Date: 20110718
  Receipt Date: 20110707
  Transmission Date: 20111222
  Serious: Yes (Hospitalization)
  Sender: FDA-Public Use
  Company Number: DK-NOVOPROD-331456

PATIENT
  Sex: Male

DRUGS (10)
  1. TREDAPTIVE [Concomitant]
  2. VICTOZA [Suspect]
     Indication: DIABETES MELLITUS
     Dosage: STYRKE: 6 MG/ML
     Dates: start: 20100211
  3. METFORMIN ACTAVIS [Concomitant]
  4. MAGNYL                             /00002701/ [Concomitant]
  5. METOPROLOL SUCCINATE [Concomitant]
  6. AMLODIPIN ACTAVIS [Concomitant]
  7. NOVORAPID FLEXPEN [Concomitant]
  8. LEVEMIR [Concomitant]
  9. LOSARTAN POTASSIUM AND HYDROCHLOROTHIAZIDE [Concomitant]
  10. LOPID [Concomitant]

REACTIONS (1)
  - PANCREATITIS ACUTE [None]
